FAERS Safety Report 8261263-8 (Version None)
Quarter: 2012Q2

REPORT INFORMATION
  Report Type: 
  Country: None (occurrence: None)
  Receive Date: 20120405
  Receipt Date: 20120329
  Transmission Date: 20120825
  Serious: Yes (Other)
  Sender: FDA-Public Use
  Company Number: US-JNJFOC-20120315032

PATIENT

DRUGS (1)
  1. STELARA [Suspect]
     Indication: CROHN'S DISEASE
     Route: 058

REACTIONS (1)
  - HAEMOGLOBIN DECREASED [None]
